FAERS Safety Report 11621010 (Version 1)
Quarter: 2015Q4

REPORT INFORMATION
  Report Type: Spontaneous
  Country: US (occurrence: None)
  Receive Date: 20151012
  Receipt Date: 20151012
  Transmission Date: 20160304
  Serious: Yes (Other)
  Sender: FDA-Public Use
  Company Number: ADR-2015-00596

PATIENT
  Age: 52 Year
  Sex: Male

DRUGS (1)
  1. COMPOUNDED BACLOFEN INTRATHECAL 25,000 MCG/ML [Suspect]
     Active Substance: BACLOFEN
     Indication: PAIN
     Dosage: 3,309 MCG/DAY

REACTIONS (4)
  - Pain [None]
  - No therapeutic response [None]
  - Muscle spasticity [None]
  - Muscle spasms [None]
